FAERS Safety Report 11492210 (Version 1)
Quarter: 2015Q3

REPORT INFORMATION
  Report Type: Spontaneous
  Country: US (occurrence: None)
  Receive Date: 20150910
  Receipt Date: 20150910
  Transmission Date: 20151125
  Serious: Yes (Disabling)
  Sender: FDA-Public Use
  Company Number: None

PATIENT
  Age: 70 Year
  Sex: Male
  Weight: 93.44 kg

DRUGS (9)
  1. COLCHICINE 0.6MG [Suspect]
     Active Substance: COLCHICINE
     Indication: PRODUCT USED FOR UNKNOWN INDICATION
     Route: 048
     Dates: end: 20150816
  2. VITAMIN D [Concomitant]
     Active Substance: CHOLECALCIFEROL
  3. LOSARTAN. [Concomitant]
     Active Substance: LOSARTAN
  4. MULT VIT [Concomitant]
  5. VITAMIN E [Concomitant]
     Active Substance: .ALPHA.-TOCOPHEROL
  6. SOTALOL. [Concomitant]
     Active Substance: SOTALOL
  7. DIGOXIN 250MCG [Suspect]
     Active Substance: DIGOXIN
     Route: 048
  8. ASPRIN [Concomitant]
     Active Substance: ASPIRIN
  9. VITAMIN B12 [Concomitant]
     Active Substance: CYANOCOBALAMIN

REACTIONS (2)
  - Nonspecific reaction [None]
  - Pain in extremity [None]

NARRATIVE: CASE EVENT DATE: 20150816
